FAERS Safety Report 4275471-4 (Version None)
Quarter: 2004Q1

REPORT INFORMATION
  Report Type: 
  Country: None (occurrence: None)
  Receive Date: 20040116
  Receipt Date: 20040112
  Transmission Date: 20041129
  Serious: Yes (Hospitalization)
  Sender: FDA-Public Use
  Company Number: CIP03003059

PATIENT
  Age: 59 Year
  Sex: Female
  Weight: 70.7 kg

DRUGS (6)
  1. ACTONEL [Suspect]
     Indication: OSTEOPOROSIS POSTMENOPAUSAL
     Dosage: 35 MG ONCE WEEKLY, ORAL
     Route: 047
     Dates: start: 20010626
  2. EVISTA [Concomitant]
  3. LEVOXYL [Concomitant]
  4. ALLEGRA [Concomitant]
  5. ADVAIR DISKUS (SALMETEROL XINAFOATE, FLUTICASONE PROPIONATE) [Concomitant]
  6. NASACORT [Concomitant]

REACTIONS (3)
  - ANAEMIA [None]
  - HYPERCALCAEMIA [None]
  - RENAL FAILURE [None]
